FAERS Safety Report 8813252 (Version 1)
Quarter: 2012Q4

REPORT INFORMATION
  Report Type: 
  Country: US (occurrence: US)
  Receive Date: 20120927
  Receipt Date: 20120927
  Transmission Date: 20130627
  Serious: No
  Sender: FDA-Public Use
  Company Number: US-AMGEN-USASP2012041304

PATIENT
  Age: 84 Year
  Sex: Female

DRUGS (15)
  1. PROLIA [Suspect]
     Indication: OSTEOPOROSIS POSTMENOPAUSAL
     Dosage: 60 mg, q6mo
     Dates: start: 201101
  2. VITAMIN D [Concomitant]
     Dosage: UNK
  3. VITAMIN D [Concomitant]
  4. PANTOPRAZOLE [Concomitant]
     Dosage: UNK
  5. PREDNISONE [Concomitant]
     Dosage: UNK
  6. FISH OIL [Concomitant]
     Dosage: UNK
  7. FUROSEMIDE [Concomitant]
     Dosage: UNK
  8. POTASSIUM CHLORIDE [Concomitant]
     Dosage: UNK
  9. CLARITIN [Concomitant]
     Dosage: UNK
  10. CALCIUM WITH VITAMIN D [Concomitant]
     Dosage: UNK
  11. MULTIVITAMIN [Concomitant]
     Dosage: UNK
  12. PROAIR [Concomitant]
     Dosage: UNK
  13. ADVAIR [Concomitant]
     Dosage: UNK
  14. SPIRIVA [Concomitant]
     Dosage: UNK
  15. SIMVASTATIN [Concomitant]
     Dosage: UNK

REACTIONS (2)
  - Blood test abnormal [Recovering/Resolving]
  - Back pain [Recovering/Resolving]
